FAERS Safety Report 6864265-9 (Version None)
Quarter: 2010Q3

REPORT INFORMATION
  Report Type: 
  Country: None (occurrence: None)
  Receive Date: 20100721
  Receipt Date: 20080320
  Transmission Date: 20110219
  Serious: No
  Sender: FDA-Public Use
  Company Number: US-PFIZER INC-2008026279

PATIENT
  Sex: Female
  Weight: 59 kg

DRUGS (8)
  1. CHANTIX [Suspect]
     Indication: SMOKING CESSATION THERAPY
     Dates: start: 20080311
  2. LEVOTHYROXINE SODIUM [Concomitant]
  3. LEXAPRO [Concomitant]
  4. DIAZEPAM [Concomitant]
  5. SIMVASTATIN [Concomitant]
  6. ESTRADIOL [Concomitant]
  7. IBUPROFEN [Concomitant]
  8. MULTI-VITAMINS [Concomitant]

REACTIONS (1)
  - NAUSEA [None]
